FAERS Safety Report 19716684 (Version 2)
Quarter: 2022Q4

REPORT INFORMATION
  Report Type: Spontaneous
  Country: DE (occurrence: DE)
  Receive Date: 20210819
  Receipt Date: 20221028
  Transmission Date: 20230112
  Serious: Yes (Hospitalization, Other)
  Sender: FDA-Public Use
  Company Number: None

PATIENT
  Age: 77 Year
  Sex: Female
  Weight: 77 kg

DRUGS (9)
  1. RISPERIDONE [Suspect]
     Active Substance: RISPERIDONE
     Indication: Product used for unknown indication
     Dosage: 0.5 MG, 1-0-1-0
     Route: 065
  2. TRIMIPRAMINE [Suspect]
     Active Substance: TRIMIPRAMINE
     Indication: Product used for unknown indication
     Dosage: 25 MG, 0-0-0-1
     Route: 065
  3. AMISULPRIDE [Suspect]
     Active Substance: AMISULPRIDE
     Indication: Product used for unknown indication
     Dosage: 50 MG, 1-0-0-0
     Route: 065
  4. CALCIUM CARBONATE [Concomitant]
     Active Substance: CALCIUM CARBONATE
     Indication: Product used for unknown indication
     Dosage: 600/400 IE, 1-0-0-0
     Route: 065
  5. FOLIC ACID [Concomitant]
     Active Substance: FOLIC ACID
     Indication: Product used for unknown indication
     Dosage: 5 MG
     Route: 065
  6. GLIMEPIRIDE [Concomitant]
     Active Substance: GLIMEPIRIDE
     Indication: Product used for unknown indication
     Dosage: 1 MG, 1-0-0-0
     Route: 065
  7. METHOTREXATE [Concomitant]
     Active Substance: METHOTREXATE
     Indication: Product used for unknown indication
     Dosage: 12.5 MG
     Route: 065
  8. PREDNISOLONE [Concomitant]
     Active Substance: PREDNISOLONE
     Indication: Product used for unknown indication
     Dosage: 1 MG, 1-0-0-0
     Route: 065
  9. SITAGLIPTIN [Concomitant]
     Active Substance: SITAGLIPTIN
     Indication: Product used for unknown indication
     Dosage: 50 MG, 1-0-0-0
     Route: 065

REACTIONS (16)
  - Dizziness [Unknown]
  - Tachycardia [Unknown]
  - Electrocardiogram abnormal [Unknown]
  - Jaundice [Unknown]
  - Palpitations [Unknown]
  - Skin irritation [Unknown]
  - Diarrhoea [Unknown]
  - Abdominal pain [Unknown]
  - Hyperglycaemia [Unknown]
  - Fall [Unknown]
  - Loss of consciousness [Unknown]
  - Taste disorder [Unknown]
  - Syncope [Unknown]
  - Supraventricular tachycardia [Unknown]
  - Atrioventricular block first degree [Unknown]
  - Wound [Unknown]
